FAERS Safety Report 7018283-0 (Version None)
Quarter: 2010Q3

REPORT INFORMATION
  Report Type: 
  Country: None (occurrence: None)
  Receive Date: 20100927
  Receipt Date: 20100927
  Transmission Date: 20110219
  Serious: Yes (Hospitalization)
  Sender: FDA-Public Use
  Company Number: None

PATIENT
  Age: 55 Year
  Sex: Female

DRUGS (1)
  1. EVAMIST [Suspect]
     Indication: HOT FLUSH
     Dosage: 1.53 MG OF ESTRADIOL/SPRAY BID TOP
     Route: 061
     Dates: start: 20100817, end: 20100924

REACTIONS (1)
  - ACCIDENTAL EXPOSURE [None]
